FAERS Safety Report 4819503-0 (Version None)
Quarter: 2005Q4

REPORT INFORMATION
  Report Type: 
  Country: None (occurrence: None)
  Receive Date: 20051102
  Receipt Date: 20051102
  Transmission Date: 20060501
  Serious: Yes (Hospitalization)
  Sender: FDA-Public Use
  Company Number: None

PATIENT
  Age: 42 Year
  Sex: Female
  Weight: 81.6475 kg

DRUGS (2)
  1. XELODA [Suspect]
     Indication: BREAST CANCER METASTATIC
     Dosage: 1740 MG PO BID DAYS 1-14
     Route: 048
  2. TAXOTERE [Suspect]
     Dosage: 130.5 MG OVER 1 IV DAY 1
     Route: 042

REACTIONS (2)
  - PARAESTHESIA [None]
  - THROMBOSIS [None]
